FAERS Safety Report 25814568 (Version 3)
Quarter: 2025Q3

REPORT INFORMATION
  Report Type: Spontaneous
  Country: EU (occurrence: EU)
  Receive Date: 20250917
  Receipt Date: 20250930
  Transmission Date: 20251021
  Serious: Yes (Life-Threatening, Hospitalization, Disabling, Other)
  Sender: BRISTOL-MYERS SQUIBB COMPANY
  Company Number: EU-BRISTOL-MYERS SQUIBB COMPANY-2025-127284

PATIENT
  Age: 74 Year
  Sex: Male
  Weight: 27 kg

DRUGS (1)
  1. AUGTYRO [Suspect]
     Active Substance: REPOTRECTINIB
     Indication: Lung cancer metastatic
     Dates: start: 20250819, end: 20250825

REACTIONS (2)
  - Hypercapnia [Recovered/Resolved]
  - Gastric ulcer haemorrhage [Recovered/Resolved]

NARRATIVE: CASE EVENT DATE: 20250824
